FAERS Safety Report 7546972-8 (Version None)
Quarter: 2011Q2

REPORT INFORMATION
  Report Type: 
  Country: None (occurrence: None)
  Receive Date: 20110607
  Receipt Date: 20110524
  Transmission Date: 20111010
  Serious: Yes (Other)
  Sender: FDA-Public Use
  Company Number: IDR-00481

PATIENT
  Age: 5 Year
  Sex: Male

DRUGS (2)
  1. INDERAL LA [Suspect]
     Indication: VENTRICULAR EXTRASYSTOLES
     Dosage: 1 MG/KG QD ORAL FORMULATION: TABLET
     Route: 048
  2. XYLOCAINE [Suspect]
     Indication: VENTRICULAR EXTRASYSTOLES
     Dosage: SEE IMAGE
     Route: 042

REACTIONS (1)
  - MYOCARDIAL DEPRESSION [None]
